FAERS Safety Report 7812035-7 (Version None)
Quarter: 2011Q4

REPORT INFORMATION
  Report Type: 
  Country: None (occurrence: None)
  Receive Date: 20111013
  Receipt Date: 20110930
  Transmission Date: 20120403
  Serious: Yes (Other)
  Sender: FDA-Public Use
  Company Number: GB-ROCHE-803152

PATIENT
  Sex: Female

DRUGS (6)
  1. MIRCERA [Suspect]
     Dosage: INCREASED DOSE
     Route: 065
  2. LEVOTHYROXINE SODIUM [Concomitant]
     Indication: HYPOTHYROIDISM
     Route: 048
     Dates: start: 20110823
  3. ASPIRIN [Concomitant]
     Indication: RENAL TRANSPLANT
     Route: 048
  4. AZATHIOPRINE [Concomitant]
     Indication: AUTOIMMUNE DISORDER
     Route: 048
  5. NEORAL [Concomitant]
     Indication: AUTOIMMUNE DISORDER
     Route: 048
  6. MIRCERA [Suspect]
     Indication: ANAEMIA
     Route: 058
     Dates: start: 20110501, end: 20110916

REACTIONS (2)
  - NO THERAPEUTIC RESPONSE [None]
  - HAEMOGLOBIN DECREASED [None]
